FAERS Safety Report 18588293 (Version 1)
Quarter: 2020Q4

REPORT INFORMATION
  Report Type: Spontaneous
  Country: US (occurrence: US)
  Receive Date: 20201207
  Receipt Date: 20201207
  Transmission Date: 20210114
  Serious: No
  Sender: FDA-Public Use
  Company Number: US-PERRIGO-20US012256

PATIENT
  Age: 68 Year
  Sex: Female
  Weight: 42.18 kg

DRUGS (2)
  1. TRIAMCINOLONE ACETONIDE. [Suspect]
     Active Substance: TRIAMCINOLONE ACETONIDE
     Indication: PRURITUS
     Dosage: THIN LAYER, BID
     Route: 061
     Dates: start: 2019, end: 202007
  2. DOXEPIN [Concomitant]
     Active Substance: DOXEPIN
     Indication: DEPRESSION
     Dosage: UNKNOWN, UNKNOWN
     Route: 048
     Dates: start: 202008

REACTIONS (3)
  - Skin texture abnormal [Not Recovered/Not Resolved]
  - Pain of skin [Not Recovered/Not Resolved]
  - Muscle atrophy [Not Recovered/Not Resolved]

NARRATIVE: CASE EVENT DATE: 202001
